FAERS Safety Report 8174099-3 (Version None)
Quarter: 2012Q1

REPORT INFORMATION
  Report Type: 
  Country: None (occurrence: None)
  Receive Date: 20120224
  Receipt Date: 20120216
  Transmission Date: 20120608
  Serious: Yes (Other)
  Sender: FDA-Public Use
  Company Number: 2012MA002244

PATIENT
  Age: 26 Year
  Sex: Female

DRUGS (5)
  1. GABAPENTIN [Suspect]
     Indication: DIABETIC NEUROPATHY
     Dosage: 1200 MG;TID
     Dates: end: 20110314
  2. METOCLOPRAMIDE [Concomitant]
  3. DULOXETIME HYDROCHLORIDE [Concomitant]
  4. TOPIRAMATE [Concomitant]
  5. MS CONTIN [Concomitant]

REACTIONS (6)
  - PREGNANCY [None]
  - CAESAREAN SECTION [None]
  - DIABETIC KETOACIDOSIS [None]
  - PYREXIA [None]
  - MATERNAL EXPOSURE DURING PREGNANCY [None]
  - FOETAL MONITORING ABNORMAL [None]
